FAERS Safety Report 6701877-7 (Version None)
Quarter: 2010Q2

REPORT INFORMATION
  Report Type: 
  Country: None (occurrence: None)
  Receive Date: 20100427
  Receipt Date: 20100419
  Transmission Date: 20101027
  Serious: Yes (Other)
  Sender: FDA-Public Use
  Company Number: DSA_42991_2010

PATIENT
  Sex: Male

DRUGS (2)
  1. WELLBUTRIN XL [Suspect]
     Indication: SLEEP DISORDER
     Dosage: 6-8 TABLETS, DF
     Dates: start: 20090101
  2. WELLBUTRIN XL [Suspect]
     Indication: SPINAL CORD INJURY
     Dosage: 6-8 TABLETS, DF
     Dates: start: 20090101

REACTIONS (5)
  - DRUG INEFFECTIVE [None]
  - HYPOAESTHESIA [None]
  - INCORRECT DOSE ADMINISTERED [None]
  - MUSCLE RIGIDITY [None]
  - PAIN IN EXTREMITY [None]
